FAERS Safety Report 24593451 (Version 1)
Quarter: 2024Q4

REPORT INFORMATION
  Report Type: Spontaneous
  Country: US (occurrence: US)
  Receive Date: 20241108
  Receipt Date: 20241108
  Transmission Date: 20250114
  Serious: No
  Sender: HELSINN HEALTHCARE
  Company Number: US-HBP-2024US031384

PATIENT
  Sex: Male

DRUGS (1)
  1. VALCHLOR [Suspect]
     Active Substance: MECHLORETHAMINE
     Indication: Cutaneous T-cell lymphoma
     Dosage: THIN FILM, 3/WEEK
     Route: 061

REACTIONS (3)
  - Skin wound [Unknown]
  - Off label use [Unknown]
  - Skin ulcer [Unknown]
